FAERS Safety Report 7360680 (Version 2)
Quarter: 2013Q3

REPORT INFORMATION
  Report Type: Spontaneous
  Country: DE (occurrence: None)
  Receive Date: 20100406
  Receipt Date: 20130709
  Transmission Date: 20140515
  Serious: Yes (Hospitalization)
  Sender: FDA-Public Use
  Company Number: AUR-APU-2010-00944

PATIENT
  Age: 43 Year
  Sex: Male

DRUGS (3)
  1. LAMOTRIGINE [Suspect]
     Indication: DEPRESSION
     Dosage: DOSE WAS TITRATED UP TO 50 MG IN STEPS OF 25 MG/WEEK, UNKNOWN
  2. CLOZAPINE [Suspect]
     Indication: BIPOLAR DISORDER
     Dosage: 300-400MG - QD
  3. LORAZEPAM [Concomitant]

REACTIONS (5)
  - Dermatitis allergic [None]
  - Dizziness [None]
  - Drug hypersensitivity [None]
  - Toxicity to various agents [None]
  - Upper respiratory tract infection [None]
